FAERS Safety Report 14361012 (Version 1)
Quarter: 2018Q1

REPORT INFORMATION
  Report Type: Spontaneous
  Country: US (occurrence: US)
  Receive Date: 20180105
  Receipt Date: 20180105
  Transmission Date: 20180509
  Serious: No
  Sender: FDA-Public Use
  Company Number: None

PATIENT
  Age: 47 Year
  Sex: Female

DRUGS (7)
  1. SPIRONOLACTONE. [Suspect]
     Active Substance: SPIRONOLACTONE
     Indication: FLUID RETENTION
     Route: 048
     Dates: start: 20170925, end: 20171212
  2. ALPRAZOLAM. [Concomitant]
     Active Substance: ALPRAZOLAM
  3. VANCOMYCIN [Concomitant]
     Active Substance: VANCOMYCIN
  4. SPIRONOLACTONE. [Suspect]
     Active Substance: SPIRONOLACTONE
     Indication: HEPATIC FAILURE
     Route: 048
     Dates: start: 20170925, end: 20171212
  5. BUPROPION. [Concomitant]
     Active Substance: BUPROPION
  6. PANTOPRAZOLE [Concomitant]
     Active Substance: PANTOPRAZOLE
  7. MEPERIDINE [Concomitant]
     Active Substance: MEPERIDINE

REACTIONS (5)
  - Diarrhoea [None]
  - Product substitution issue [None]
  - Nausea [None]
  - Vomiting [None]
  - Product taste abnormal [None]

NARRATIVE: CASE EVENT DATE: 20180105
